FAERS Safety Report 9776926 (Version 4)
Quarter: 2014Q2

REPORT INFORMATION
  Report Type: Report from Study
  Country: CA (occurrence: CA)
  Receive Date: 20131221
  Receipt Date: 20140523
  Transmission Date: 20141212
  Serious: Yes (Other)
  Sender: FDA-Public Use
  Company Number: CA-ROCHE-1321610

PATIENT
  Sex: Male
  Weight: 98 kg

DRUGS (3)
  1. RITUXAN [Suspect]
     Indication: B-CELL LYMPHOMA
     Dosage: THE PATIENT RECEICVED RITUXIMAB INFUSION ON 03/DEC/2013 AND 21/DEC/2013.
     Route: 042
     Dates: start: 201112, end: 2013
  2. RANITIDINE [Concomitant]
  3. PANTOLOC [Concomitant]

REACTIONS (1)
  - Lymphoma [Not Recovered/Not Resolved]
